FAERS Safety Report 4293699-4 (Version None)
Quarter: 2004Q1

REPORT INFORMATION
  Report Type: 
  Country: None (occurrence: None)
  Receive Date: 20040211
  Receipt Date: 20040126
  Transmission Date: 20041129
  Serious: Yes (Other)
  Sender: FDA-Public Use
  Company Number: 10044474-NA01-8

PATIENT
  Age: 67 Year
  Sex: Female

DRUGS (2)
  1. 1# 2B1323 0.9% SODIUM CHLORIDE INJECTION, USP [Suspect]
     Indication: INTRAVENOUS CATHETER MANAGEMENT
     Dosage: DOSE: 5ML, HEPARINIZED SALINE SYRINGE FREQUENCY: CATHETER FLUSH PRN
     Dates: start: 20030911
  2. ROCEPHIN [Concomitant]

REACTIONS (1)
  - PSEUDOMONAL BACTERAEMIA [None]
